FAERS Safety Report 9387123 (Version 1)
Quarter: 2013Q3

REPORT INFORMATION
  Report Type: Spontaneous
  Country: IT (occurrence: IT)
  Receive Date: 20130708
  Receipt Date: 20130708
  Transmission Date: 20140515
  Serious: Yes (Hospitalization)
  Sender: FDA-Public Use
  Company Number: IT-ROCHE-1245293

PATIENT
  Age: 67 Year
  Sex: Male

DRUGS (10)
  1. TORADOL [Suspect]
     Indication: GOUT
     Route: 030
     Dates: start: 20130523, end: 20130523
  2. OXYBUTYNIN HYDROCHLORIDE [Concomitant]
     Route: 065
  3. ESKIM [Concomitant]
     Route: 065
  4. LISINOPRIL [Concomitant]
     Route: 065
  5. TOTALIP [Concomitant]
     Route: 065
  6. ONBREZ [Concomitant]
     Route: 065
  7. PERIDON (ITALY) [Concomitant]
     Route: 065
  8. MICROSER [Concomitant]
     Indication: VERTIGO
     Route: 065
  9. ACETYLSALICYLIC ACID [Concomitant]
  10. OKI [Concomitant]

REACTIONS (3)
  - Dyspnoea [Recovering/Resolving]
  - Rash generalised [Recovering/Resolving]
  - Adverse drug reaction [Recovering/Resolving]
